FAERS Safety Report 6069668-0 (Version None)
Quarter: 2009Q1

REPORT INFORMATION
  Report Type: 
  Country: None (occurrence: None)
  Receive Date: 20090209
  Receipt Date: 20090128
  Transmission Date: 20090719
  Serious: Yes (Other)
  Sender: FDA-Public Use
  Company Number: US-JNJFOC-20081103041

PATIENT
  Sex: Male
  Weight: 87.09 kg

DRUGS (4)
  1. REMICADE [Suspect]
     Dosage: 415 MG
     Route: 042
  2. REMICADE [Suspect]
     Route: 042
  3. REMICADE [Suspect]
     Indication: CROHN'S DISEASE
     Route: 042
  4. BENADRYL [Concomitant]
     Indication: PREMEDICATION

REACTIONS (4)
  - DYSPNOEA [None]
  - FLUSHING [None]
  - INFUSION RELATED REACTION [None]
  - SPEECH DISORDER [None]
